FAERS Safety Report 13815334 (Version 2)
Quarter: 2017Q4

REPORT INFORMATION
  Report Type: Spontaneous
  Country: US (occurrence: US)
  Receive Date: 20170731
  Receipt Date: 20171129
  Transmission Date: 20180320
  Serious: Yes (Hospitalization, Other)
  Sender: FDA-Public Use
  Company Number: US-PFIZER INC-2017328594

PATIENT
  Age: 54 Year
  Sex: Female
  Weight: 104.3 kg

DRUGS (25)
  1. OXYCODONE [Concomitant]
     Active Substance: OXYCODONE
     Indication: PAIN
     Dosage: 10 MG, EVERY 6-8 HOURS
     Route: 048
     Dates: start: 201603
  2. NARCAN [Concomitant]
     Active Substance: NALOXONE HYDROCHLORIDE
     Indication: ACCIDENTAL OVERDOSE
     Dosage: UNK, AS NEEDED, (4 MG/0.1 ML SPRAY 4 MG )
     Route: 045
  3. PRILOCAINE [Concomitant]
     Active Substance: PRILOCAINE
     Indication: PAIN
     Dosage: 2 %, 4X/DAY
     Route: 061
  4. LANTUS [Concomitant]
     Active Substance: INSULIN GLARGINE
     Dosage: 100 IU/ML, UNK
     Route: 058
  5. LYRICA [Suspect]
     Active Substance: PREGABALIN
     Indication: NEURALGIA
  6. MOBIC [Concomitant]
     Active Substance: MELOXICAM
     Indication: PAIN
     Dosage: UNK UNK, 4X/DAY
     Route: 061
  7. ALPRAZOLAM. [Concomitant]
     Active Substance: ALPRAZOLAM
     Dosage: UNK, [1 MG/ 0.5 MG]
  8. CELEBREX [Concomitant]
     Active Substance: CELECOXIB
     Dosage: 200 MG, UNK
  9. LYRICA [Suspect]
     Active Substance: PREGABALIN
     Indication: FIBROMYALGIA
     Dosage: 200 MG, 2X/DAY
     Route: 048
  10. LYRICA [Suspect]
     Active Substance: PREGABALIN
     Indication: PAIN
     Dosage: 400 MG, DAILY
  11. OXYCODONE [Concomitant]
     Active Substance: OXYCODONE
     Dosage: UNK, 4X/DAY [1.5 TAB(S)/ EVERY 6 HOURS]
     Route: 048
  12. ELAVIL [Concomitant]
     Active Substance: AMITRIPTYLINE HYDROCHLORIDE
     Indication: SLEEP DISORDER
     Dosage: UNK
  13. AMITRIPTYLINE [Concomitant]
     Active Substance: AMITRIPTYLINE
     Indication: SLEEP DISORDER
     Dosage: 25 MG, 1X/DAY [AT BEDTIME]
     Route: 048
  14. GABAPENTIN. [Concomitant]
     Active Substance: GABAPENTIN
     Indication: PAIN
     Dosage: UNK UNK, 4X/DAY
     Route: 061
  15. LYRICA [Suspect]
     Active Substance: PREGABALIN
     Indication: DIABETIC NEUROPATHY
     Dosage: 25 MG, 2X/DAY
     Dates: start: 2016
  16. MELATONIN [Concomitant]
     Active Substance: MELATONIN
     Indication: SLEEP DISORDER
     Dosage: 6 MG, UNK
  17. PROAIR HFA [Concomitant]
     Active Substance: ALBUTEROL SULFATE
     Dosage: 180 UG, 4X/DAY [90 MCG/INH AEROSOL 2 PUFF(S) INHALED 4 TIMES A DAY]
  18. XIGDUO XR [Concomitant]
     Active Substance: DAPAGLIFLOZIN PROPANEDIOL\METFORMIN HYDROCHLORIDE
     Dosage: 2 DF, 1X/DAY [DAPAGLIFLOZIN PROPANEDIOL MONOHYDRATE 5MG]/ [METFORMIN HYDROCHLORIDE 1000 MG]
     Route: 048
  19. NICODERM CQ [Concomitant]
     Active Substance: NICOTINE
     Dosage: 21 MG, 1X/DAY
     Route: 062
  20. TOPIRAMATE. [Concomitant]
     Active Substance: TOPIRAMATE
     Indication: PAIN
     Dosage: UNK UNK, 4X/DAY
     Route: 061
  21. LEVORPHANOL [Concomitant]
     Active Substance: LEVORPHANOL
     Indication: PAIN
     Dosage: ]2 MG, UNK [1 TAB QAM, 1 TAB NOON, 1 TAB EVENING, AND 2 TABS AT NIGHT]
  22. VITAMIN D2 [Concomitant]
     Active Substance: ERGOCALCIFEROL
     Dosage: 1.25 MG, WEEKLY
     Route: 048
  23. LEVORPHANOL [Concomitant]
     Active Substance: LEVORPHANOL
     Indication: NEURALGIA
     Dosage: 2 MG, 4X/DAY [EVERY 6 HOURS]
     Route: 048
  24. ATORVASTATIN [Concomitant]
     Active Substance: ATORVASTATIN
     Dosage: 20 MG, 1X/DAY
     Route: 048
  25. LIDOCAINE. [Concomitant]
     Active Substance: LIDOCAINE
     Indication: PAIN
     Dosage: UNK UNK, 4X/DAY
     Route: 061

REACTIONS (27)
  - Drug ineffective [Not Recovered/Not Resolved]
  - Influenza [Unknown]
  - Alopecia [Unknown]
  - Exostosis [Unknown]
  - Pain [Not Recovered/Not Resolved]
  - Joint stiffness [Unknown]
  - Muscle spasms [Unknown]
  - Joint swelling [Unknown]
  - Insomnia [Unknown]
  - Myalgia [Unknown]
  - Pneumonia [Unknown]
  - Sensory loss [Unknown]
  - Muscular weakness [Unknown]
  - Gait disturbance [Unknown]
  - Urosepsis [Unknown]
  - Burns third degree [Unknown]
  - Finger deformity [Unknown]
  - Erythema [Unknown]
  - Weight increased [Unknown]
  - Impaired work ability [Unknown]
  - Fatigue [Unknown]
  - Condition aggravated [Not Recovered/Not Resolved]
  - Balance disorder [Unknown]
  - Confusional state [Unknown]
  - Depression [Unknown]
  - Xerosis [Unknown]
  - Peripheral arterial occlusive disease [Unknown]

NARRATIVE: CASE EVENT DATE: 2016
